FAERS Safety Report 17934547 (Version 1)
Quarter: 2020Q2

REPORT INFORMATION
  Report Type: Spontaneous
  Country: US (occurrence: US)
  Receive Date: 20200623
  Receipt Date: 20200623
  Transmission Date: 20200714
  Serious: Yes (Hospitalization)
  Sender: FDA-Public Use
  Company Number: None

PATIENT
  Age: 2 Year
  Sex: Male
  Weight: 12.4 kg

DRUGS (6)
  1. METHOTREXATE. [Suspect]
     Active Substance: METHOTREXATE
     Dates: end: 20200611
  2. CYTARABINE. [Suspect]
     Active Substance: CYTARABINE
     Dates: end: 20200604
  3. DEXAMETHASONE. [Suspect]
     Active Substance: DEXAMETHASONE
     Dates: end: 20200613
  4. DAUNORUBICIN [Suspect]
     Active Substance: DAUNORUBICIN
     Dates: end: 20200611
  5. ONCASPAR [Suspect]
     Active Substance: PEGASPARGASE
     Dates: end: 20200607
  6. VINCRISTINE SULFATE. [Suspect]
     Active Substance: VINCRISTINE SULFATE
     Dates: end: 20200611

REACTIONS (3)
  - Injection site infection [None]
  - Febrile neutropenia [None]
  - Staphylococcal sepsis [None]

NARRATIVE: CASE EVENT DATE: 20200614
